FAERS Safety Report 14605182 (Version 2)
Quarter: 2018Q2

REPORT INFORMATION
  Report Type: Spontaneous
  Country: US (occurrence: US)
  Receive Date: 20180306
  Receipt Date: 20180613
  Transmission Date: 20180711
  Serious: Yes (Hospitalization)
  Sender: FDA-Public Use
  Company Number: US-TAKEDA-2018MPI002216

PATIENT
  Age: 67 Year
  Sex: Male
  Weight: 70.3 kg

DRUGS (2)
  1. NINLARO [Suspect]
     Active Substance: IXAZOMIB CITRATE
     Indication: HEAVY CHAIN DISEASE
     Dosage: 4 MG, 1/WEEK
     Route: 048
     Dates: start: 20170809
  2. NINLARO [Suspect]
     Active Substance: IXAZOMIB CITRATE
     Dosage: 3 MG, UNK
     Route: 048

REACTIONS (9)
  - Dyspnoea [Unknown]
  - Vomiting [Unknown]
  - Off label use [Unknown]
  - Upper-airway cough syndrome [Unknown]
  - Fluid retention [Unknown]
  - Heart rate increased [Unknown]
  - Dyspepsia [Unknown]
  - Retching [Unknown]
  - Feeling abnormal [Unknown]

NARRATIVE: CASE EVENT DATE: 20170809
